FAERS Safety Report 4828204-4 (Version None)
Quarter: 2005Q4

REPORT INFORMATION
  Report Type: 
  Country: None (occurrence: None)
  Receive Date: 20051115
  Receipt Date: 20051110
  Transmission Date: 20060501
  Serious: Yes (Hospitalization)
  Sender: FDA-Public Use
  Company Number: 2005-CZ-00696

PATIENT
  Age: 47 Year
  Sex: Female

DRUGS (3)
  1. ACYCLOVIR [Suspect]
     Indication: HERPES ZOSTER
     Dosage: 250MG THREE TIMES PER DAY
     Route: 042
  2. AZATHIOPRINE [Concomitant]
     Indication: RENAL FAILURE
     Dosage: 100MG PER DAY
     Route: 048
  3. PREDNISOLONE [Concomitant]
     Indication: RENAL FAILURE
     Dosage: 10MG PER DAY
     Route: 048

REACTIONS (5)
  - AGITATION [None]
  - HALLUCINATION, VISUAL [None]
  - HYPERTENSION [None]
  - SOMNOLENCE [None]
  - TOXIC INDUCED ENCEPHALOPATHY [None]
